FAERS Safety Report 12640626 (Version 1)
Quarter: 2016Q3

REPORT INFORMATION
  Report Type: Spontaneous
  Country: RO (occurrence: RO)
  Receive Date: 20160810
  Receipt Date: 20160810
  Transmission Date: 20161109
  Serious: Yes (Life-Threatening, Other)
  Sender: FDA-Public Use
  Company Number: RO-TEVA-683750ISR

PATIENT
  Age: 71 Year
  Sex: Female

DRUGS (1)
  1. G-CSF (TEVAGRASTIM/RATIOGRASTIM) [Suspect]
     Active Substance: FILGRASTIM
     Indication: COLONY STIMULATING FACTOR PROPHYLAXIS
     Dosage: 48 MILLIGRAM DAILY; SUBCUTANEOUS
     Route: 058
     Dates: start: 20160508, end: 20160508

REACTIONS (5)
  - Hyperhidrosis [Recovered/Resolved]
  - Face oedema [Recovered/Resolved]
  - Dyspnoea [Recovered/Resolved]
  - Tachycardia [Recovered/Resolved]
  - Erythema [Recovered/Resolved]

NARRATIVE: CASE EVENT DATE: 20160508
